FAERS Safety Report 14846169 (Version 1)
Quarter: 2018Q2

REPORT INFORMATION
  Report Type: Spontaneous
  Country: US (occurrence: US)
  Receive Date: 20180504
  Receipt Date: 20180504
  Transmission Date: 20180711
  Serious: No
  Sender: FDA-Public Use
  Company Number: US-BAYER-2018-082964

PATIENT
  Age: 17 Year
  Sex: Female
  Weight: 58.96 kg

DRUGS (2)
  1. MIRALAX [Suspect]
     Active Substance: POLYETHYLENE GLYCOL 3350
     Indication: COLONOSCOPY
     Dosage: UNK(238GRAMS IN 64 OUNCES GATORADE)
     Route: 048
     Dates: start: 20180425
  2. DULCOLAX (BISACODYL) [Concomitant]
     Active Substance: BISACODYL
     Dosage: 2 DF, UNK

REACTIONS (3)
  - Product prescribing issue [Unknown]
  - Circumstance or information capable of leading to medication error [None]
  - Product use in unapproved indication [None]

NARRATIVE: CASE EVENT DATE: 20180425
